FAERS Safety Report 16403070 (Version 1)
Quarter: 2019Q2

REPORT INFORMATION
  Report Type: Spontaneous
  Country: TR (occurrence: TR)
  Receive Date: 20190607
  Receipt Date: 20190607
  Transmission Date: 20190711
  Serious: Yes (Other)
  Sender: FDA-Public Use
  Company Number: TR-SUN PHARMACEUTICAL INDUSTRIES LTD-2019RR-209669

PATIENT
  Age: 30 Year
  Sex: Male

DRUGS (1)
  1. ISOTRETINOIN. [Suspect]
     Active Substance: ISOTRETINOIN
     Indication: ACNE
     Dosage: 20 MILLIGRAM, DAILY
     Route: 065

REACTIONS (3)
  - Dry skin [Unknown]
  - Arthritis [Recovered/Resolved]
  - Sacroiliitis [Recovered/Resolved]
